FAERS Safety Report 9798182 (Version 1)
Quarter: 2014Q1

REPORT INFORMATION
  Report Type: Spontaneous
  Country: US (occurrence: None)
  Receive Date: 20140102
  Receipt Date: 20140102
  Transmission Date: 20141002
  Serious: Yes (Life-Threatening)
  Sender: FDA-Public Use
  Company Number: 2089021

PATIENT
  Age: 25 Year
  Sex: Male

DRUGS (2)
  1. (KETAMINE HYDROCHLORIDE) [Suspect]
     Indication: ENDOTRACHEAL INTUBATION
  2. (POLYETHYLENE GLYCOL) [Concomitant]

REACTIONS (5)
  - Cardiac arrest [None]
  - Respiratory distress [None]
  - Bradycardia [None]
  - Pulseless electrical activity [None]
  - Hypoxic-ischaemic encephalopathy [None]
